FAERS Safety Report 7341597-1 (Version None)
Quarter: 2011Q1

REPORT INFORMATION
  Report Type: 
  Country: None (occurrence: None)
  Receive Date: 20110228
  Receipt Date: 20110211
  Transmission Date: 20110831
  Serious: Yes (Hospitalization)
  Sender: FDA-Public Use
  Company Number: 012251

PATIENT
  Age: 6 Year
  Sex: Male
  Weight: 20.6 kg

DRUGS (3)
  1. TOPIRAMATE [Concomitant]
  2. LEVETIRACETAM [Suspect]
     Indication: PARTIAL SEIZURES
     Dosage: (DOSE: 375)
     Dates: start: 20071203
  3. VALPROIC ACID [Concomitant]

REACTIONS (7)
  - SPEECH DISORDER [None]
  - AGGRESSION [None]
  - GAIT DISTURBANCE [None]
  - STATUS EPILEPTICUS [None]
  - DISTURBANCE IN ATTENTION [None]
  - AGITATION [None]
  - PSYCHOMOTOR HYPERACTIVITY [None]
